FAERS Safety Report 4777242-9 (Version None)
Quarter: 2005Q3

REPORT INFORMATION
  Report Type: 
  Country: None (occurrence: None)
  Receive Date: 20050915
  Receipt Date: 20040913
  Transmission Date: 20060218
  Serious: Yes (Disabling)
  Sender: FDA-Public Use
  Company Number: 602685

PATIENT
  Age: 24 Year
  Sex: Male
  Weight: 63.4 kg

DRUGS (1)
  1. IMMUNE GLOBULIN INTRAVENOUS (HUMAN) [Suspect]
     Dosage: IV
     Route: 042

REACTIONS (1)
  - ENCEPHALOPATHY [None]
